FAERS Safety Report 17611712 (Version 3)
Quarter: 2020Q2

REPORT INFORMATION
  Report Type: Spontaneous
  Country: US (occurrence: US)
  Receive Date: 20200401
  Receipt Date: 20200410
  Transmission Date: 20200713
  Serious: Yes (Other)
  Sender: FDA-Public Use
  Company Number: US-BIOMARINAP-US-2020-129174

PATIENT
  Age: 9 Year
  Sex: Male
  Weight: 29.98 kg

DRUGS (4)
  1. KUVAN [Suspect]
     Active Substance: SAPROPTERIN DIHYDROCHLORIDE
     Indication: PHENYLKETONURIA
     Dosage: 500 MILLIGRAM, QD
     Route: 048
     Dates: start: 20140428
  2. GUANFACINE. [Concomitant]
     Active Substance: GUANFACINE
     Indication: SLEEP DISORDER
     Dosage: 2 MILLIGRAM
  3. GUANFACINE. [Concomitant]
     Active Substance: GUANFACINE
     Indication: DISTURBANCE IN ATTENTION
     Dosage: 3 MILLIGRAM
  4. GUANFACINE. [Concomitant]
     Active Substance: GUANFACINE
     Indication: ATTENTION DEFICIT HYPERACTIVITY DISORDER

REACTIONS (6)
  - Learning disability [Not Recovered/Not Resolved]
  - Suicidal ideation [Not Recovered/Not Resolved]
  - Somnolence [Recovered/Resolved]
  - Anxiety [Not Recovered/Not Resolved]
  - Attention deficit hyperactivity disorder [Unknown]
  - Depression [Not Recovered/Not Resolved]

NARRATIVE: CASE EVENT DATE: 202003
